FAERS Safety Report 24417325 (Version 3)
Quarter: 2024Q4

REPORT INFORMATION
  Report Type: Spontaneous
  Country: US (occurrence: US)
  Receive Date: 20241009
  Receipt Date: 20241216
  Transmission Date: 20250115
  Serious: Yes (Other)
  Sender: BRISTOL-MYERS SQUIBB COMPANY
  Company Number: US-BRISTOL-MYERS SQUIBB COMPANY-2024-156306

PATIENT
  Age: 78 Year
  Sex: Female

DRUGS (2)
  1. POMALYST [Suspect]
     Active Substance: POMALIDOMIDE
     Indication: Plasmacytoma
     Dosage: 21 DAYS ON 7 DAYS OFF
     Route: 048
  2. POMALYST [Suspect]
     Active Substance: POMALIDOMIDE
     Dosage: EVERY OTHER DAY FOR 21 DAYS THEN 7 DAYS OFF
     Route: 048

REACTIONS (11)
  - Illness [Unknown]
  - Limb discomfort [Unknown]
  - Syncope [Unknown]
  - Head injury [Unknown]
  - Full blood count decreased [Unknown]
  - Urinary tract infection [Recovering/Resolving]
  - Off label use [Unknown]
  - Dizziness [Unknown]
  - Peripheral swelling [Not Recovered/Not Resolved]
  - Dementia [Unknown]
  - Hypotension [Unknown]
